FAERS Safety Report 4921166-0 (Version None)
Quarter: 2006Q1

REPORT INFORMATION
  Report Type: 
  Country: None (occurrence: None)
  Receive Date: 20060217
  Receipt Date: 20060203
  Transmission Date: 20060701
  Serious: Yes (Hospitalization)
  Sender: FDA-Public Use
  Company Number: 222214

PATIENT
  Age: 46 Year
  Sex: Female
  Weight: 60 kg

DRUGS (7)
  1. AVASTIN [Suspect]
     Indication: COLON CANCER
     Dosage: 440 MG, Q3W, INTRAVENOUS
     Route: 042
     Dates: start: 20051024
  2. CAPECITABINE(CAPECITABINE) [Suspect]
     Indication: COLON CANCER
     Dosage: SEE IMAGE
     Route: 048
     Dates: start: 20051024
  3. CAPECITABINE(CAPECITABINE) [Suspect]
     Indication: COLON CANCER
     Dosage: SEE IMAGE
     Route: 048
     Dates: start: 20051219
  4. CAPECITABINE(CAPECITABINE) [Suspect]
  5. OXALIPLATIN(OXALIPLATIN) [Suspect]
     Indication: COLON CANCER
     Dosage: 215 MG, Q3W,INTRAVENOUS
     Route: 042
     Dates: start: 20051024
  6. CAPECITABINE(CAPECITABINE) [Suspect]
  7. CAPECITABINE(CAPECITABINE) [Suspect]

REACTIONS (5)
  - DIARRHOEA [None]
  - NASOPHARYNGITIS [None]
  - NAUSEA [None]
  - NEUTROPENIC INFECTION [None]
  - VOMITING [None]
